FAERS Safety Report 15207145 (Version 1)
Quarter: 2018Q4

REPORT INFORMATION
  Report Type: Report from Study
  Country: None (occurrence: TN)
  Receive Date: 20180727
  Receipt Date: 20180727
  Transmission Date: 20190204
  Serious: Yes (Hospitalization, Other)
  Sender: FDA-Public Use
  Company Number: TN-ABBVIE-18K-160-2426168-00

PATIENT
  Age: 23 Year
  Sex: Female

DRUGS (9)
  1. PRONAL (SITOSTEROL) [Suspect]
     Active Substance: SITOSTEROLS
     Indication: DIARRHOEA HAEMORRHAGIC
  2. HUMIRA [Suspect]
     Active Substance: ADALIMUMAB
     Indication: CROHN^S DISEASE
     Dosage: 160 MG LOADING DOSE
     Route: 058
     Dates: start: 20180619, end: 20180619
  3. HUMIRA [Suspect]
     Active Substance: ADALIMUMAB
     Dosage: 80 MG LOADING DOSE
     Route: 058
     Dates: start: 20180704, end: 20180704
  4. SOLUPRED (PREDNISOLONE) [Suspect]
     Active Substance: PREDNISOLONE
     Indication: CROHN^S DISEASE
     Dosage: DOSE WAS TAPERED DOWN PROGRESSIVELY WHEN PATIENT STARTED HUMIRA
     Route: 065
     Dates: start: 201612, end: 20180717
  5. BUSCOPAN [Suspect]
     Active Substance: BUTYLSCOPOLAMINE BROMIDE
     Indication: ABDOMINAL PAIN
  6. PRONAL (SITOSTEROL) [Suspect]
     Active Substance: SITOSTEROLS
     Indication: CROHN^S DISEASE
     Route: 065
  7. BUSCOPAN [Suspect]
     Active Substance: BUTYLSCOPOLAMINE BROMIDE
     Indication: DIARRHOEA HAEMORRHAGIC
  8. BUSCOPAN [Suspect]
     Active Substance: BUTYLSCOPOLAMINE BROMIDE
     Indication: CROHN^S DISEASE
     Route: 065
  9. PRONAL (SITOSTEROL) [Suspect]
     Active Substance: SITOSTEROLS
     Indication: ABDOMINAL PAIN

REACTIONS (5)
  - Dizziness [Recovering/Resolving]
  - Pancreatitis [Recovering/Resolving]
  - Crohn^s disease [Recovering/Resolving]
  - Fatigue [Recovering/Resolving]
  - Abdominal distension [Recovering/Resolving]

NARRATIVE: CASE EVENT DATE: 20180626
